FAERS Safety Report 23717579 (Version 1)
Quarter: 2024Q2

REPORT INFORMATION
  Report Type: Spontaneous
  Country: US (occurrence: None)
  Receive Date: 20240405
  Receipt Date: 20240405
  Transmission Date: 20240716
  Serious: No
  Sender: FDA-Public Use
  Company Number: None

PATIENT
  Age: 6 Year
  Sex: Female

DRUGS (1)
  1. DUPIXENT [Suspect]
     Active Substance: DUPILUMAB
     Indication: Eczema
     Dosage: 200MG EVERY 2 WEEKS UNDER THE SKIN?
     Route: 058

REACTIONS (3)
  - Weight increased [None]
  - Paraesthesia [None]
  - Hypoaesthesia [None]
